FAERS Safety Report 15579447 (Version 1)
Quarter: 2018Q4

REPORT INFORMATION
  Report Type: Spontaneous
  Country: US (occurrence: US)
  Receive Date: 20181102
  Receipt Date: 20181102
  Transmission Date: 20190205
  Serious: Yes (Hospitalization)
  Sender: FDA-Public Use
  Company Number: US-NOVOPROD-629320

PATIENT
  Age: 24 Year
  Sex: Male
  Weight: 68 kg

DRUGS (1)
  1. NOVOLIN N [Suspect]
     Active Substance: INSULIN HUMAN
     Indication: TYPE 1 DIABETES MELLITUS
     Dosage: 17 U, QD
     Route: 065

REACTIONS (2)
  - Treatment noncompliance [Unknown]
  - Metabolic alkalosis [Recovered/Resolved]
